FAERS Safety Report 8813688 (Version 1)
Quarter: 2012Q4

REPORT INFORMATION
  Report Type: 
  Country: US (occurrence: US)
  Receive Date: 20120928
  Receipt Date: 20120928
  Transmission Date: 20130627
  Serious: Yes (Hospitalization)
  Sender: FDA-Public Use
  Company Number: US-009507513-1209USA007548

PATIENT
  Age: 63 Year
  Sex: Female

DRUGS (4)
  1. PRINIVIL [Suspect]
     Dosage: 10 mg, qd
     Route: 048
  2. PRINIVIL [Suspect]
     Dosage: 20 mg, qd
     Route: 048
  3. METOPROLOL [Concomitant]
     Dosage: 25 mg, bid
  4. ASPIRIN [Concomitant]
     Dosage: 81 mg, qd

REACTIONS (1)
  - Hypoaldosteronism [Recovering/Resolving]
